FAERS Safety Report 25352096 (Version 2)
Quarter: 2025Q2

REPORT INFORMATION
  Report Type: Report from Study
  Country: CA (occurrence: CA)
  Receive Date: 20250523
  Receipt Date: 20250610
  Transmission Date: 20250717
  Serious: Yes (Other)
  Sender: ROCHE
  Company Number: CA-ROCHE-10000283218

PATIENT

DRUGS (1)
  1. DORNASE ALFA [Suspect]
     Active Substance: DORNASE ALFA
     Indication: Pleural infection
     Route: 065

REACTIONS (4)
  - Haemorrhage [Unknown]
  - Haemothorax [Unknown]
  - Haemoptysis [Unknown]
  - Pain [Unknown]
